FAERS Safety Report 20100934 (Version 1)
Quarter: 2021Q4

REPORT INFORMATION
  Report Type: Spontaneous
  Country: GB (occurrence: GB)
  Receive Date: 20211123
  Receipt Date: 20211123
  Transmission Date: 20220304
  Serious: Yes (Hospitalization)
  Sender: FDA-Public Use
  Company Number: GB-TEVA-2021-GB-1980005

PATIENT
  Age: 40 Year
  Sex: Male

DRUGS (7)
  1. PREDNISOLONE [Suspect]
     Active Substance: PREDNISOLONE
     Indication: Inflammatory myofibroblastic tumour
     Route: 065
  2. PREDNISOLONE [Suspect]
     Active Substance: PREDNISOLONE
     Indication: Inflammatory myofibroblastic tumour
     Route: 065
  3. LORLATINIB [Suspect]
     Active Substance: LORLATINIB
     Indication: Inflammatory myofibroblastic tumour
     Dosage: ADDITIONAL INFO: OFF LABEL USE
     Route: 048
  4. BRIGATINIB [Suspect]
     Active Substance: BRIGATINIB
     Indication: Inflammatory myofibroblastic tumour
     Dosage: ADDITIONAL INFO: OFF LABEL USE
     Route: 065
  5. ENTRECTINIB [Concomitant]
     Active Substance: ENTRECTINIB
     Indication: Inflammatory myofibroblastic tumour
     Dosage: STARTRK-2 TRIAL
     Route: 065
  6. IFOSFAMIDE [Concomitant]
     Active Substance: IFOSFAMIDE
     Indication: Inflammatory myofibroblastic tumour
     Dosage: ADDITIONAL INFO: ACTION TAKEN: RECEIVED FOUR CYCLES OF CHEMOTHERAPY
     Route: 065
  7. ETOPOSIDE [Concomitant]
     Active Substance: ETOPOSIDE
     Indication: Inflammatory myofibroblastic tumour
     Dosage: ADDITIONAL INFO: ACTION TAKEN: RECEIVED FOUR CYCLES OF CHEMOTHERAPY
     Route: 065

REACTIONS (6)
  - Stomatitis [Unknown]
  - Insomnia [Unknown]
  - Paronychia [Unknown]
  - Hyperlipidaemia [Unknown]
  - Off label use [Unknown]
  - Drug ineffective [Unknown]
